FAERS Safety Report 10340318 (Version 1)
Quarter: 2014Q3

REPORT INFORMATION
  Report Type: Spontaneous
  Country: FR (occurrence: FR)
  Receive Date: 20140724
  Receipt Date: 20140724
  Transmission Date: 20150326
  Serious: Yes (Hospitalization)
  Sender: FDA-Public Use
  Company Number: FR-PFIZER INC-2014200839

PATIENT
  Age: 86 Year
  Sex: Female

DRUGS (2)
  1. ADVIL [Suspect]
     Active Substance: IBUPROFEN
     Indication: NASOPHARYNGITIS
     Dosage: UNK
     Route: 048
     Dates: start: 20140219, end: 20140224
  2. ASPEGIC [Suspect]
     Active Substance: ASPIRIN DL-LYSINE
     Dosage: 100 MG, 1X/DAY
     Route: 048
     Dates: end: 20140227

REACTIONS (3)
  - Anaemia [Recovered/Resolved]
  - Melaena [Recovered/Resolved]
  - Hypotension [Recovered/Resolved]

NARRATIVE: CASE EVENT DATE: 20140227
